FAERS Safety Report 13415176 (Version 2)
Quarter: 2017Q2

REPORT INFORMATION
  Report Type: Report from Study
  Country: None (occurrence: US)
  Receive Date: 20170406
  Receipt Date: 20170505
  Transmission Date: 20170830
  Serious: Yes (Other)
  Sender: FDA-Public Use
  Company Number: US-ABBVIE-17K-163-1846440-00

PATIENT
  Age: 59 Year
  Sex: Female

DRUGS (1)
  1. HUMIRA [Suspect]
     Active Substance: ADALIMUMAB
     Indication: PSORIATIC ARTHROPATHY
     Route: 058
     Dates: start: 20161102, end: 20170415

REACTIONS (4)
  - Fatigue [Unknown]
  - Cardiac disorder [Unknown]
  - Left ventricular failure [Recovering/Resolving]
  - Heart rate irregular [Unknown]

NARRATIVE: CASE EVENT DATE: 20170109
